FAERS Safety Report 14014720 (Version 1)
Quarter: 2017Q3

REPORT INFORMATION
  Report Type: Spontaneous
  Country: US (occurrence: US)
  Receive Date: 20170927
  Receipt Date: 20170927
  Transmission Date: 20171128
  Serious: Yes (Other)
  Sender: FDA-Public Use
  Company Number: US-PFIZER INC-2017411713

PATIENT
  Age: 53 Year
  Sex: Female
  Weight: 47 kg

DRUGS (1)
  1. SUTENT [Suspect]
     Active Substance: SUNITINIB MALATE
     Indication: MALIGNANT NEOPLASM OF RENAL PELVIS
     Dosage: 50 MG,  [28 CAPSULES FOR A 42 DAY] (TAKEN FOR 25 DAYS)
     Dates: end: 20170905

REACTIONS (2)
  - Blood pressure increased [Unknown]
  - Blister [Recovered/Resolved]

NARRATIVE: CASE EVENT DATE: 20170826
